FAERS Safety Report 8019029 (Version 39)
Quarter: 2015Q2

REPORT INFORMATION
  Report Type: Report from Study
  Country: CA (occurrence: CA)
  Receive Date: 20110701
  Receipt Date: 20150626
  Transmission Date: 20150821
  Serious: Yes (Other)
  Sender: FDA-Public Use
  Company Number: PHHY2011CA11428

PATIENT
  Age: 47 Year
  Sex: Female
  Weight: 49.43 kg

DRUGS (10)
  1. SANDOSTATIN [Suspect]
     Active Substance: OCTREOTIDE ACETATE
     Indication: MEDULLARY THYROID CANCER
     Dosage: 50 UG, UNK
     Route: 058
  2. ROCALTROL [Concomitant]
     Active Substance: CALCITRIOL
     Indication: PRODUCT USED FOR UNKNOWN INDICATION
     Dosage: 0.25 MG, QD
     Route: 048
  3. ELTROXIN [Concomitant]
     Active Substance: LEVOTHYROXINE
     Indication: PRODUCT USED FOR UNKNOWN INDICATION
     Dosage: 0.15 MG, QD
     Route: 048
  4. ULTIMATE PLUS [Concomitant]
     Indication: PRODUCT USED FOR UNKNOWN INDICATION
     Route: 065
  5. SANDOSTATIN LAR DEPOT [Suspect]
     Active Substance: OCTREOTIDE ACETATE
     Dosage: 30 MG, TIW
     Route: 030
  6. CALCIUM [Concomitant]
     Active Substance: CALCIUM
     Indication: PRODUCT USED FOR UNKNOWN INDICATION
     Dosage: UNK UNK, BID
     Route: 065
  7. SANDOSTATIN LAR DEPOT [Suspect]
     Active Substance: OCTREOTIDE ACETATE
     Indication: MEDULLARY THYROID CANCER
     Dosage: 30 MG, QMO/EVERY 4 WEEKS
     Route: 030
     Dates: start: 20040713, end: 20070306
  8. SANDOSTATIN [Suspect]
     Active Substance: OCTREOTIDE ACETATE
     Dosage: 100 UG, BID
     Route: 058
     Dates: end: 20120223
  9. CAPRELSA [Concomitant]
     Active Substance: VANDETANIB
     Indication: PRODUCT USED FOR UNKNOWN INDICATION
     Dosage: UNK
     Route: 065
  10. CELEBREX [Concomitant]
     Active Substance: CELECOXIB
     Indication: PRODUCT USED FOR UNKNOWN INDICATION
     Dosage: QD (SOMETIMES BID)
     Route: 048

REACTIONS (57)
  - Weight decreased [Unknown]
  - Musculoskeletal chest pain [Recovering/Resolving]
  - Lymphadenopathy [Unknown]
  - Dysphonia [Not Recovered/Not Resolved]
  - Dizziness [Unknown]
  - Nausea [Unknown]
  - Injection site erythema [Unknown]
  - Injection site pain [Unknown]
  - Diarrhoea [Not Recovered/Not Resolved]
  - Haematoma [Unknown]
  - Pain [Unknown]
  - Oral discomfort [Unknown]
  - Dermatitis acneiform [Unknown]
  - Muscular weakness [Unknown]
  - Abdominal distension [Recovering/Resolving]
  - Headache [Unknown]
  - Needle issue [Unknown]
  - Back pain [Unknown]
  - Small intestinal bacterial overgrowth [Unknown]
  - Erythema [Unknown]
  - Nervousness [Recovering/Resolving]
  - Lymph node pain [Unknown]
  - Haemorrhoids [Unknown]
  - Dry eye [Unknown]
  - Hypoaesthesia [Unknown]
  - Osteoarthritis [Unknown]
  - Rash [Not Recovered/Not Resolved]
  - Abdominal pain upper [Unknown]
  - Underdose [Unknown]
  - Blood pressure decreased [Unknown]
  - Acne [Unknown]
  - Flushing [Unknown]
  - Feeling abnormal [Unknown]
  - Asthenia [Unknown]
  - Injection site discomfort [Unknown]
  - Depressed mood [Unknown]
  - Arthritis [Unknown]
  - Alopecia [Unknown]
  - Rectal haemorrhage [Recovering/Resolving]
  - Frustration [Unknown]
  - Pollakiuria [Unknown]
  - Joint swelling [Unknown]
  - Urinary tract infection [Not Recovered/Not Resolved]
  - Orthostatic hypotension [Unknown]
  - Musculoskeletal pain [Recovering/Resolving]
  - Wrong technique in drug usage process [Unknown]
  - Anorectal discomfort [Recovering/Resolving]
  - Cough [Recovering/Resolving]
  - Vision blurred [Unknown]
  - Skin discolouration [Unknown]
  - Petechiae [Unknown]
  - Upper respiratory tract infection [Recovering/Resolving]
  - Myalgia [Recovering/Resolving]
  - Flank pain [Unknown]
  - Injection site mass [Not Recovered/Not Resolved]
  - Pruritus [Unknown]
  - Product use issue [Unknown]

NARRATIVE: CASE EVENT DATE: 20040713
